FAERS Safety Report 7354988-X (Version None)
Quarter: 2011Q1

REPORT INFORMATION
  Report Type: 
  Country: None (occurrence: None)
  Receive Date: 20110316
  Receipt Date: 20110310
  Transmission Date: 20110831
  Serious: Yes (Hospitalization)
  Sender: FDA-Public Use
  Company Number: GB-PFIZER INC-2011055123

PATIENT
  Age: 22 Year
  Sex: Male

DRUGS (9)
  1. OMEPRAZOLE [Concomitant]
     Dosage: 40 MG, UNK
  2. MST [Concomitant]
     Dosage: 40 MG, UNK
  3. SENNA [Concomitant]
  4. LACTULOSE [Concomitant]
  5. PARACETAMOL [Concomitant]
     Dosage: 1 G, UNK
  6. METOCLOPRAMIDE [Concomitant]
     Dosage: 80 MG, UNK
     Dates: start: 20101028
  7. DICLOFENAC [Concomitant]
     Dosage: 150 MG, UNK
  8. TRIMETHOPRIM [Concomitant]
     Dosage: 200 MG, UNK
     Dates: start: 20110302
  9. SUTENT [Suspect]
     Indication: TRANSITIONAL CELL CARCINOMA
     Dosage: 25 MG, UNK
     Dates: start: 20101028, end: 20110309

REACTIONS (7)
  - DIZZINESS [None]
  - ABDOMINAL PAIN [None]
  - STOMATITIS [None]
  - HEADACHE [None]
  - HAEMATOMA [None]
  - BACK PAIN [None]
  - VOMITING [None]
